FAERS Safety Report 16469123 (Version 1)
Quarter: 2019Q2

REPORT INFORMATION
  Report Type: Spontaneous
  Country: US (occurrence: US)
  Receive Date: 20190514
  Receipt Date: 20190514
  Transmission Date: 20190711
  Serious: Yes (Other)
  Sender: FDA-Public Use
  Company Number: None

PATIENT
  Age: 71 Year
  Sex: Male
  Weight: 78.47 kg

DRUGS (1)
  1. LOSARTAN 50MG [Suspect]
     Active Substance: LOSARTAN
     Indication: HYPERTENSION
     Dosage: ?          QUANTITY:90 DF DOSAGE FORM;?
     Route: 048
     Dates: start: 20180108, end: 20190424

REACTIONS (7)
  - Thrombosis [None]
  - Product dispensing error [None]
  - Recalled product administered [None]
  - Flank pain [None]
  - Nephrolithiasis [None]
  - Back pain [None]
  - Product lot number issue [None]
